FAERS Safety Report 11226713 (Version 2)
Quarter: 2016Q4

REPORT INFORMATION
  Report Type: Spontaneous
  Country: US (occurrence: US)
  Receive Date: 20150630
  Receipt Date: 20161007
  Transmission Date: 20170206
  Serious: Yes (Other)
  Sender: FDA-Public Use
  Company Number: US-SA-2015SA071576

PATIENT
  Age: 45 Year
  Sex: Female

DRUGS (6)
  1. PROPRANOLOL [Concomitant]
     Active Substance: PROPRANOLOL\PROPRANOLOL HYDROCHLORIDE
  2. AUBAGIO [Suspect]
     Active Substance: TERIFLUNOMIDE
     Indication: MULTIPLE SCLEROSIS
     Route: 048
     Dates: start: 20150519
  3. GABAPENTIN. [Concomitant]
     Active Substance: GABAPENTIN
  4. EFFEXOR [Concomitant]
     Active Substance: VENLAFAXINE HYDROCHLORIDE
  5. METHOCARBAMOL. [Concomitant]
     Active Substance: METHOCARBAMOL
  6. AMITRIPTYLINE [Concomitant]
     Active Substance: AMITRIPTYLINE

REACTIONS (5)
  - Multiple sclerosis relapse [Unknown]
  - Dizziness [Recovered/Resolved]
  - Neuropathy peripheral [Unknown]
  - Fatigue [Unknown]
  - Vision blurred [Unknown]

NARRATIVE: CASE EVENT DATE: 201505
